FAERS Safety Report 11994774 (Version 1)
Quarter: 2016Q1

REPORT INFORMATION
  Report Type: Spontaneous
  Country: US (occurrence: US)
  Receive Date: 20160203
  Receipt Date: 20160203
  Transmission Date: 20160526
  Serious: No
  Sender: FDA-Public Use
  Company Number: US-WATSON-2015-25327

PATIENT
  Sex: Female
  Weight: 59 kg

DRUGS (1)
  1. NECON [Suspect]
     Active Substance: ETHINYL ESTRADIOL\NORETHINDRONE
     Indication: PRODUCT USED FOR UNKNOWN INDICATION
     Dosage: UNK, DAILY
     Route: 048

REACTIONS (1)
  - Drug ineffective for unapproved indication [Unknown]
